FAERS Safety Report 23693098 (Version 1)
Quarter: 2024Q2

REPORT INFORMATION
  Report Type: Spontaneous
  Country: US (occurrence: US)
  Receive Date: 20240401
  Receipt Date: 20240401
  Transmission Date: 20240715
  Serious: Yes (Other)
  Sender: FDA-Public Use
  Company Number: US-TEVA-VS-3176229

PATIENT

DRUGS (1)
  1. HYDROXOCOBALAMIN [Suspect]
     Active Substance: HYDROXOCOBALAMIN
     Indication: Pernicious anaemia
     Route: 065

REACTIONS (4)
  - Paralysis [Unknown]
  - Limb deformity [Unknown]
  - Gait disturbance [Unknown]
  - Product supply issue [Unknown]
